FAERS Safety Report 9891640 (Version 1)
Quarter: 2014Q1

REPORT INFORMATION
  Report Type: Spontaneous
  Country: US (occurrence: US)
  Receive Date: 20140212
  Receipt Date: 20140212
  Transmission Date: 20141002
  Serious: No
  Sender: FDA-Public Use
  Company Number: US-TEVA-461948USA

PATIENT
  Sex: Female

DRUGS (2)
  1. PARAGARD 380A [Suspect]
     Indication: CONTRACEPTION
     Route: 015
     Dates: start: 20140103, end: 20140103
  2. PARAGARD 380A [Suspect]
     Route: 015
     Dates: start: 20140103

REACTIONS (1)
  - Device expulsion [Recovered/Resolved]
